FAERS Safety Report 6634126-9 (Version None)
Quarter: 2010Q1

REPORT INFORMATION
  Report Type: 
  Country: None (occurrence: None)
  Receive Date: 20100315
  Receipt Date: 20100303
  Transmission Date: 20100710
  Serious: No
  Sender: FDA-Public Use
  Company Number: JP-ELI_LILLY_AND_COMPANY-JP201003002911

PATIENT
  Age: 35 Year
  Sex: Male

DRUGS (2)
  1. ZYPREXA [Suspect]
     Dosage: 15 MG EVERY MORNING AND 10 MG EVERY EVENING, DAILY (1/D)
     Route: 048
     Dates: start: 20100201
  2. DEPAS [Concomitant]
     Dosage: 0.5 MG, DAILY (1/D)
     Route: 048
     Dates: start: 20100201

REACTIONS (4)
  - EPISTAXIS [None]
  - OFF LABEL USE [None]
  - OVERDOSE [None]
  - RASH [None]
